FAERS Safety Report 12263976 (Version 1)
Quarter: 2016Q2

REPORT INFORMATION
  Report Type: Spontaneous
  Country: BR (occurrence: BR)
  Receive Date: 20160413
  Receipt Date: 20160413
  Transmission Date: 20160815
  Serious: Yes (Hospitalization, Other)
  Sender: FDA-Public Use
  Company Number: BR-BAYER-2016-050437

PATIENT
  Sex: Female

DRUGS (4)
  1. POTASSIUM [Suspect]
     Active Substance: POTASSIUM
     Indication: PULMONARY EMBOLISM
     Dosage: 1 DF, QD
     Route: 048
  2. SIBUTRAMINE [Concomitant]
     Active Substance: SIBUTRAMINE
     Indication: WEIGHT CONTROL
     Dosage: UNK
     Route: 048
  3. YASMIN [Suspect]
     Active Substance: DROSPIRENONE\ETHINYL ESTRADIOL
     Indication: CONTRACEPTION
     Dosage: 1 DF, QD
     Route: 048
     Dates: start: 201306
  4. POTASSIUM [Suspect]
     Active Substance: POTASSIUM
     Indication: PULMONARY EMBOLISM
     Dosage: UNK
     Route: 042
     Dates: start: 20160203, end: 20160203

REACTIONS (9)
  - Pulmonary hypertension [None]
  - Cough [None]
  - Dyspnoea [None]
  - Fatigue [None]
  - Swelling [None]
  - Pulmonary embolism [None]
  - Phlebitis [None]
  - Chest pain [None]
  - Haematoma [None]

NARRATIVE: CASE EVENT DATE: 20160221
